FAERS Safety Report 6234348-5 (Version None)
Quarter: 2009Q2

REPORT INFORMATION
  Report Type: 
  Country: None (occurrence: None)
  Receive Date: 20090616
  Receipt Date: 20090616
  Transmission Date: 20091009
  Serious: Yes (Other)
  Sender: FDA-Public Use
  Company Number: None

PATIENT
  Age: 33 Year
  Sex: Female
  Weight: 86.1834 kg

DRUGS (2)
  1. DAPSONE [Suspect]
     Indication: DERMATITIS
     Dosage: 100MG 2 TIMES A DAY
     Dates: start: 20090501, end: 20090614
  2. DAPSONE [Suspect]
     Indication: PEMPHIGOID

REACTIONS (4)
  - ALOPECIA [None]
  - OEDEMA PERIPHERAL [None]
  - PARAESTHESIA [None]
  - SWELLING FACE [None]
